FAERS Safety Report 6860959-X (Version None)
Quarter: 2010Q3

REPORT INFORMATION
  Report Type: 
  Country: None (occurrence: None)
  Receive Date: 20100720
  Receipt Date: 20100709
  Transmission Date: 20110219
  Serious: Yes (Death)
  Sender: FDA-Public Use
  Company Number: RU-JNJFOC-20100604623

PATIENT
  Sex: Female

DRUGS (1)
  1. MEBENDAZOLE [Suspect]
     Indication: HEPATIC ECHINOCOCCIASIS
     Route: 048

REACTIONS (4)
  - DISEASE COMPLICATION [None]
  - HEPATORENAL FAILURE [None]
  - METABOLIC DISORDER [None]
  - THERAPEUTIC RESPONSE DECREASED [None]
